FAERS Safety Report 21394790 (Version 2)
Quarter: 2024Q3

REPORT INFORMATION
  Report Type: Spontaneous
  Country: GR (occurrence: GR)
  Receive Date: 20220930
  Receipt Date: 20240702
  Transmission Date: 20241017
  Serious: Yes (Death, Life-Threatening, Hospitalization, Other)
  Sender: BRISTOL MYERS SQUIBB
  Company Number: GR-BRISTOL-MYERS SQUIBB COMPANY-2022-109075

PATIENT
  Age: 27 Week
  Sex: Male
  Weight: 0.81 kg

DRUGS (11)
  1. AZTREONAM [Suspect]
     Active Substance: AZTREONAM
     Indication: Product used for unknown indication
  2. AMIKACIN [Suspect]
     Active Substance: AMIKACIN
     Indication: Product used for unknown indication
  3. GENTAMICIN [Suspect]
     Active Substance: GENTAMICIN
     Indication: Evidence based treatment
  4. GENTAMICIN [Suspect]
     Active Substance: GENTAMICIN
  5. FLUCONAZOLE [Suspect]
     Active Substance: FLUCONAZOLE
     Indication: Prophylaxis
  6. FLUCONAZOLE [Suspect]
     Active Substance: FLUCONAZOLE
  7. MEROPENEM [Suspect]
     Active Substance: MEROPENEM
     Indication: Product used for unknown indication
  8. AMPHOTERICIN B [Suspect]
     Active Substance: AMPHOTERICIN B
     Indication: Product used for unknown indication
  9. COLISTIN [Suspect]
     Active Substance: COLISTIN
     Indication: Product used for unknown indication
     Dosage: 75,000  IU/KG/D
  10. METRONIDAZOLE [Suspect]
     Active Substance: METRONIDAZOLE
     Indication: Evidence based treatment
  11. AMPICILLIN [Concomitant]
     Active Substance: AMPICILLIN
     Indication: Evidence based treatment

REACTIONS (1)
  - Fungaemia [Fatal]
